FAERS Safety Report 22394282 (Version 2)
Quarter: 2023Q2

REPORT INFORMATION
  Report Type: Spontaneous
  Country: GB (occurrence: GB)
  Receive Date: 20230601
  Receipt Date: 20230614
  Transmission Date: 20230722
  Serious: Yes (Other)
  Sender: FDA-Public Use
  Company Number: GB-BIOGEN-2023BI01208384

PATIENT
  Age: 46 Year
  Sex: Female

DRUGS (1)
  1. TECFIDERA [Suspect]
     Active Substance: DIMETHYL FUMARATE
     Indication: Relapsing-remitting multiple sclerosis
     Route: 050
     Dates: start: 2015, end: 2017

REACTIONS (2)
  - Cerebrovascular accident [Unknown]
  - Lymphopenia [Unknown]

NARRATIVE: CASE EVENT DATE: 20160101
